FAERS Safety Report 17567581 (Version 1)
Quarter: 2020Q1

REPORT INFORMATION
  Report Type: Spontaneous
  Country: US (occurrence: US)
  Receive Date: 20200320
  Receipt Date: 20200320
  Transmission Date: 20200409
  Serious: Yes (Other)
  Sender: FDA-Public Use
  Company Number: US-JNJFOC-20200317885

PATIENT
  Age: 86 Year
  Sex: Female
  Weight: 84.44 kg

DRUGS (3)
  1. LOPRESSOR [Concomitant]
     Active Substance: METOPROLOL TARTRATE
  2. XARELTO [Suspect]
     Active Substance: RIVAROXABAN
     Indication: THROMBOSIS
     Dosage: STARTED TWO YEARS AGO
     Route: 048
  3. ZOCOR [Concomitant]
     Active Substance: SIMVASTATIN

REACTIONS (1)
  - Thrombosis [Unknown]

NARRATIVE: CASE EVENT DATE: 202003
